FAERS Safety Report 15535758 (Version 2)
Quarter: 2020Q2

REPORT INFORMATION
  Report Type: Spontaneous
  Country: US (occurrence: US)
  Receive Date: 20181022
  Receipt Date: 20200526
  Transmission Date: 20200713
  Serious: No
  Sender: FDA-Public Use
  Company Number: US-PFIZER INC-2018424508

PATIENT
  Age: 53 Year
  Sex: Female

DRUGS (1)
  1. XELJANZ XR [Suspect]
     Active Substance: TOFACITINIB CITRATE
     Indication: RHEUMATOID ARTHRITIS
     Dosage: 11 MG, 1X/DAY
     Route: 048
     Dates: start: 2017

REACTIONS (8)
  - Nasopharyngitis [Unknown]
  - Sputum discoloured [Unknown]
  - Bronchitis [Unknown]
  - Skin ulcer [Unknown]
  - Lipids increased [Unknown]
  - Condition aggravated [Recovering/Resolving]
  - Feeling of body temperature change [Unknown]
  - Facial pain [Unknown]
